FAERS Safety Report 18571378 (Version 5)
Quarter: 2021Q1

REPORT INFORMATION
  Report Type: Spontaneous
  Country: GB (occurrence: GB)
  Receive Date: 20201202
  Receipt Date: 20210312
  Transmission Date: 20210419
  Serious: Yes (Other)
  Sender: FDA-Public Use
  Company Number: GB-ALLERGAN-2044536US

PATIENT
  Sex: Male

DRUGS (4)
  1. GABAPENTIN. [Suspect]
     Active Substance: GABAPENTIN
     Indication: PRODUCT USED FOR UNKNOWN INDICATION
     Dosage: UNK
     Route: 048
  2. BOTOX [Suspect]
     Active Substance: ONABOTULINUMTOXINA
     Indication: MUSCLE SPASTICITY
     Dosage: UNK UNK, SINGLE
     Dates: start: 20190307, end: 20190307
  3. BACLOFEN. [Suspect]
     Active Substance: BACLOFEN
     Indication: PRODUCT USED FOR UNKNOWN INDICATION
     Route: 048
  4. BOTOX [Suspect]
     Active Substance: ONABOTULINUMTOXINA
     Indication: MUSCLE SPASTICITY
     Dosage: UNK UNK, SINGLE
     Dates: start: 20190307, end: 20190307

REACTIONS (4)
  - Somnolence [Unknown]
  - Muscle spasms [Unknown]
  - Injection site pain [Unknown]
  - Partial seizures [Unknown]
